FAERS Safety Report 8729241 (Version 2)
Quarter: 2013Q3

REPORT INFORMATION
  Report Type: Spontaneous
  Country: US (occurrence: US)
  Receive Date: 20120817
  Receipt Date: 20130823
  Transmission Date: 20140515
  Serious: Yes (Other)
  Sender: FDA-Public Use
  Company Number: US-BRISTOL-MYERS SQUIBB COMPANY-16595241

PATIENT
  Age: 72 Year
  Sex: Female
  Weight: 64 kg

DRUGS (7)
  1. SPRYCEL (CML) TABS 100 MG [Suspect]
     Indication: CHRONIC MYELOID LEUKAEMIA
     Dosage: STARTED: SINCE OCT,EXP:DEC2014,SEP14?2A6005A,EXP:JAN2015
     Route: 048
  2. LISINOPRIL [Concomitant]
  3. MULTIVITAMINS [Concomitant]
  4. VITAMIN C [Concomitant]
  5. VITAMIN D [Concomitant]
  6. CALCIUM [Concomitant]
  7. FERROUS SULFATE [Concomitant]

REACTIONS (11)
  - Bronchospasm [Unknown]
  - Hair colour changes [Unknown]
  - Hypotonia [Unknown]
  - Anxiety [Not Recovered/Not Resolved]
  - Insomnia [Unknown]
  - Hypersensitivity [Recovered/Resolved]
  - Nasopharyngitis [Unknown]
  - Oropharyngeal pain [Unknown]
  - Weight increased [Unknown]
  - Abdominal pain upper [Unknown]
  - Haemoglobin decreased [Unknown]
